FAERS Safety Report 10811306 (Version 1)
Quarter: 2015Q1

REPORT INFORMATION
  Report Type: Spontaneous
  Country: TR (occurrence: None)
  Receive Date: 20150212
  Receipt Date: 20150212
  Transmission Date: 20150721
  Serious: Yes (Hospitalization)
  Sender: FDA-Public Use
  Company Number: INT_00687_2015

PATIENT
  Age: 43 Year
  Sex: Male

DRUGS (3)
  1. 5-FU /00098801/ [Suspect]
     Active Substance: FLUOROURACIL
     Indication: GASTRIC CANCER
     Dosage: 750 MG/DAY, FOR THREE DAYS
  2. CISPLATIN (CISPLATIN) (HQ SPECIALTY) [Suspect]
     Active Substance: CISPLATIN
     Indication: GASTRIC CANCER
     Dosage: 40 MG/DAY, FOR THREE DAYS
  3. TAXOTERE [Suspect]
     Active Substance: DOCETAXEL
     Indication: GASTRIC CANCER
     Dosage: 120 G/DAY, FOR INITIAL DAY

REACTIONS (1)
  - Arterial thrombosis [None]
